FAERS Safety Report 10565711 (Version 1)
Quarter: 2014Q4

REPORT INFORMATION
  Report Type: Spontaneous
  Country: US (occurrence: None)
  Receive Date: 20141103
  Receipt Date: 20141103
  Transmission Date: 20150529
  Serious: Yes (Hospitalization)
  Sender: FDA-Public Use
  Company Number: LH201400353

PATIENT
  Age: 27 Year
  Sex: Female

DRUGS (7)
  1. RETINOL [Concomitant]
     Active Substance: RETINOL
  2. VITAMIN D [Concomitant]
     Active Substance: CHOLECALCIFEROL
  3. MAKENA [Suspect]
     Active Substance: HYDROXYPROGESTERONE CAPROATE
     Indication: PREMATURE DELIVERY
     Dosage: ONCE A WEEK
     Route: 030
     Dates: start: 20140910, end: 20141010
  4. NICOTINIC ACID [Concomitant]
     Active Substance: NIACIN
  5. VITAMIN B NOS [Concomitant]
     Active Substance: VITAMIN B
  6. PRENATAL VITAMINS MINERALS /01549301/ (ASCORBIC ACID, BIOTIN MINERALS NOS, [Concomitant]
  7. TOCOPHEROL [Concomitant]
     Active Substance: TOCOPHEROL

REACTIONS (7)
  - Rash [None]
  - Injection site hypoaesthesia [None]
  - Injection site pruritus [None]
  - Injection site swelling [None]
  - Injection site urticaria [None]
  - Injection site bruising [None]
  - Exposure during pregnancy [None]

NARRATIVE: CASE EVENT DATE: 20141008
